FAERS Safety Report 21304451 (Version 1)
Quarter: 2022Q3

REPORT INFORMATION
  Report Type: Spontaneous
  Country: US (occurrence: None)
  Receive Date: 20220907
  Receipt Date: 20220907
  Transmission Date: 20221026
  Serious: No
  Sender: FDA-Public Use
  Company Number: US-ARIS GLOBAL-202108-1430

PATIENT
  Age: 38 Year
  Sex: Male

DRUGS (3)
  1. OXERVATE [Suspect]
     Active Substance: CENEGERMIN-BKBJ
     Indication: Neurotrophic keratopathy
     Route: 047
     Dates: start: 20210812, end: 20211002
  2. DUREZOL [Concomitant]
     Active Substance: DIFLUPREDNATE
  3. CIPROFLOXACIN HYDROCHLORIDE [Concomitant]
     Active Substance: CIPROFLOXACIN HYDROCHLORIDE
     Dosage: 0.2 % DROPERETTE

REACTIONS (20)
  - Eye pain [Recovered/Resolved]
  - Eye irritation [Not Recovered/Not Resolved]
  - Eye pruritus [Unknown]
  - Dry eye [Unknown]
  - Foreign body sensation in eyes [Not Recovered/Not Resolved]
  - Eyelid disorder [Unknown]
  - Haemorrhoidal haemorrhage [Unknown]
  - Vision blurred [Unknown]
  - Eye discharge [Not Recovered/Not Resolved]
  - Product dose omission issue [Unknown]
  - Periorbital swelling [Recovered/Resolved]
  - Anxiety [Not Recovered/Not Resolved]
  - Oropharyngeal pain [Unknown]
  - Swelling of eyelid [Recovered/Resolved]
  - Lacrimation increased [Recovered/Resolved]
  - Nervousness [Unknown]
  - Insomnia [Not Recovered/Not Resolved]
  - Visual impairment [Unknown]
  - Corneal scar [Unknown]
  - Panic attack [Unknown]

NARRATIVE: CASE EVENT DATE: 20210801
